FAERS Safety Report 8469802-9 (Version None)
Quarter: 2012Q2

REPORT INFORMATION
  Report Type: 
  Country: None (occurrence: None)
  Receive Date: 20120626
  Receipt Date: 20120619
  Transmission Date: 20120825
  Serious: Yes (Hospitalization, Other)
  Sender: FDA-Public Use
  Company Number: US-MERCK-1203USA03506

PATIENT
  Age: 58 Year
  Sex: Female

DRUGS (13)
  1. CYMBALTA [Concomitant]
     Route: 048
  2. OS-CAL (CALCIUM CARBONATE) [Concomitant]
     Indication: OSTEOPOROSIS
     Route: 048
     Dates: start: 19920101, end: 20060101
  3. PREDNISONE [Concomitant]
     Route: 065
     Dates: start: 19970101
  4. REMICADE [Concomitant]
     Route: 048
  5. METHOTREXATE SODIUM [Concomitant]
     Route: 048
  6. VITAMIN D (UNSPECIFIED) [Concomitant]
     Route: 048
  7. OMEPRAZOLE [Concomitant]
     Route: 065
     Dates: start: 20000101, end: 20080101
  8. VITAMINS (UNSPECIFIED) [Concomitant]
     Route: 065
     Dates: start: 19950101, end: 20100101
  9. ENBREL [Concomitant]
     Route: 048
  10. CYANOCOBALAMIN [Concomitant]
     Route: 048
  11. NYSTATIN [Concomitant]
     Route: 065
  12. FOSAMAX [Suspect]
     Route: 048
     Dates: start: 20080101, end: 20100401
  13. FOSAMAX [Suspect]
     Indication: OSTEOPOROSIS
     Route: 048
     Dates: start: 20010101, end: 20080201

REACTIONS (67)
  - ABDOMINAL DISTENSION [None]
  - DEPRESSION [None]
  - BILE DUCT STONE [None]
  - GASTRITIS [None]
  - CANDIDIASIS [None]
  - ASTHENIA [None]
  - URINARY TRACT INFECTION [None]
  - SYNOVITIS [None]
  - SPINAL DISORDER [None]
  - BACK PAIN [None]
  - INFLUENZA [None]
  - FAECES DISCOLOURED [None]
  - DERMATITIS [None]
  - BENIGN NEOPLASM OF SKIN [None]
  - CYSTITIS INTERSTITIAL [None]
  - PAIN [None]
  - GASTROOESOPHAGEAL REFLUX DISEASE [None]
  - NAUSEA [None]
  - LUMBAR RADICULOPATHY [None]
  - LOW TURNOVER OSTEOPATHY [None]
  - DRUG INEFFECTIVE [None]
  - ANAEMIA POSTOPERATIVE [None]
  - HELICOBACTER INFECTION [None]
  - HAEMORRHOIDS [None]
  - PERIPHERAL VASCULAR DISORDER [None]
  - MYOSITIS [None]
  - BURSITIS [None]
  - RASH [None]
  - DRY EYE [None]
  - FEMUR FRACTURE [None]
  - CHOLELITHIASIS [None]
  - CYSTITIS NONINFECTIVE [None]
  - CHEST PAIN [None]
  - POSTMENOPAUSE [None]
  - ARTHROPATHY [None]
  - DRY SKIN [None]
  - COLONIC POLYP [None]
  - ANXIETY [None]
  - HEADACHE [None]
  - FOOT DEFORMITY [None]
  - LIMB DISCOMFORT [None]
  - INGROWING NAIL [None]
  - ERUCTATION [None]
  - PITYRIASIS ROSEA [None]
  - BREAKTHROUGH PAIN [None]
  - ANKLE FRACTURE [None]
  - ADVERSE EVENT [None]
  - OSTEOARTHRITIS [None]
  - HAEMATOCHEZIA [None]
  - CYSTITIS [None]
  - ARTHRALGIA [None]
  - URINARY TRACT DISORDER [None]
  - URGE INCONTINENCE [None]
  - ABDOMINAL DISCOMFORT [None]
  - SJOGREN'S SYNDROME [None]
  - SCIATICA [None]
  - FATIGUE [None]
  - DRUG ADMINISTRATION ERROR [None]
  - EYE MOVEMENT DISORDER [None]
  - FRACTURE NONUNION [None]
  - CONSTIPATION [None]
  - HYPERTENSION [None]
  - TUBERCULIN TEST POSITIVE [None]
  - ROTATOR CUFF SYNDROME [None]
  - LIVER FUNCTION TEST ABNORMAL [None]
  - DERMATITIS CONTACT [None]
  - ABDOMINAL PAIN LOWER [None]
